FAERS Safety Report 6131176-6 (Version None)
Quarter: 2009Q1

REPORT INFORMATION
  Report Type: 
  Country: None (occurrence: None)
  Receive Date: 20090325
  Receipt Date: 20090316
  Transmission Date: 20090719
  Serious: Yes (Hospitalization, Other)
  Sender: FDA-Public Use
  Company Number: AU-WYE-H08516909

PATIENT
  Sex: Female
  Weight: 48 kg

DRUGS (4)
  1. SOMAC [Suspect]
     Indication: ULCER HAEMORRHAGE
     Route: 042
     Dates: start: 20090127, end: 20090129
  2. SOMAC [Suspect]
     Indication: HAEMATEMESIS
  3. SOMAC [Suspect]
     Route: 048
     Dates: start: 20090129, end: 20090206
  4. ACETYLSALICYLIC ACID [Concomitant]
     Dosage: UNKNOWN

REACTIONS (5)
  - BLOOD ALBUMIN DECREASED [None]
  - HAEMATURIA [None]
  - OEDEMA [None]
  - PROTEIN URINE [None]
  - TUBULOINTERSTITIAL NEPHRITIS [None]
